FAERS Safety Report 11516537 (Version 3)
Quarter: 2016Q1

REPORT INFORMATION
  Report Type: Spontaneous
  Country: US (occurrence: US)
  Receive Date: 20150917
  Receipt Date: 20160225
  Transmission Date: 20160525
  Serious: Yes (Hospitalization, Other)
  Sender: FDA-Public Use
  Company Number: US-009507513-1509USA006306

PATIENT
  Age: 64 Year
  Sex: Male

DRUGS (3)
  1. TEMODAR [Suspect]
     Active Substance: TEMOZOLOMIDE
     Dosage: 160 MG, DAILY FROM DAYS 1 TO 5 IN A 28 DAY CYCLE
     Route: 042
     Dates: start: 20150225, end: 2015
  2. TEMODAR [Suspect]
     Active Substance: TEMOZOLOMIDE
     Indication: NEOPLASM MALIGNANT
     Dosage: 160 MG, DAILY FROM DAYS 1 TO 5 IN A 28 DAY CYCLE
     Route: 042
     Dates: start: 20140619, end: 20140917
  3. TEMODAR [Suspect]
     Active Substance: TEMOZOLOMIDE
     Dosage: 360 MG DAILY FROM DAYS 1 TO 5 IN A 28 DAY CYCLE
     Route: 042
     Dates: start: 20140918, end: 20150224

REACTIONS (6)
  - Drug ineffective [Unknown]
  - Ear disorder [Unknown]
  - Poisoning [Unknown]
  - Surgery [Unknown]
  - Disease progression [Unknown]
  - Surgery [Unknown]

NARRATIVE: CASE EVENT DATE: 201507
